FAERS Safety Report 7477828-7 (Version None)
Quarter: 2011Q2

REPORT INFORMATION
  Report Type: 
  Country: None (occurrence: None)
  Receive Date: 20110513
  Receipt Date: 20110429
  Transmission Date: 20111010
  Serious: Yes (Other)
  Sender: FDA-Public Use
  Company Number: US-ELI_LILLY_AND_COMPANY-US201103000728

PATIENT
  Sex: Female

DRUGS (5)
  1. FORTEO [Suspect]
     Dosage: 20 UG, QD
     Route: 065
  2. ESTRADIOL [Concomitant]
  3. FORTEO [Suspect]
     Indication: OSTEOPOROSIS
     Dosage: 20 UG, DAILY (1/D)
     Dates: start: 20110301
  4. CALCIUM [Concomitant]
  5. PRILOSEC [Concomitant]

REACTIONS (12)
  - DIARRHOEA [None]
  - TRANSIENT ISCHAEMIC ATTACK [None]
  - BONE PAIN [None]
  - MYALGIA [None]
  - ASTHENIA [None]
  - FEELING ABNORMAL [None]
  - ARTERIAL DISORDER [None]
  - DIZZINESS [None]
  - NAUSEA [None]
  - DYSGEUSIA [None]
  - HEADACHE [None]
  - ARTHRALGIA [None]
